FAERS Safety Report 8426501-7 (Version None)
Quarter: 2012Q2

REPORT INFORMATION
  Report Type: 
  Country: None (occurrence: None)
  Receive Date: 20120611
  Receipt Date: 20120604
  Transmission Date: 20120825
  Serious: Yes (Hospitalization)
  Sender: FDA-Public Use
  Company Number: US-B.I. PHARMACEUTICALS,INC./RIDGEFIELD-2012-BP-12942BP

PATIENT
  Sex: Male

DRUGS (15)
  1. GUAIFENESIN [Concomitant]
     Indication: DRY MOUTH
     Dosage: 1200 MG
     Route: 048
  2. OMEPRAZOLE [Concomitant]
     Indication: GASTROOESOPHAGEAL REFLUX DISEASE
     Dosage: 40 MG
     Route: 048
  3. PRADAXA [Suspect]
     Indication: ATRIAL FIBRILLATION
     Dosage: 300 MG
     Route: 048
     Dates: start: 20110301
  4. NORVASC [Concomitant]
     Indication: HYPERTENSION
     Dosage: 10 MG
     Route: 048
  5. COZAAR [Concomitant]
     Indication: HYPERTENSION
     Dosage: 50 MG
     Route: 048
  6. LASIX [Concomitant]
     Indication: HYPERTENSION
     Dosage: 160 MG
     Route: 048
  7. NOVOLIN N [Concomitant]
     Indication: TYPE 1 DIABETES MELLITUS
     Route: 058
  8. NOVOLIN R [Concomitant]
     Indication: TYPE 1 DIABETES MELLITUS
     Route: 058
  9. NASAREL [Concomitant]
     Indication: SEASONAL ALLERGY
     Route: 045
  10. CALCIUM + D3 [Concomitant]
     Indication: ROUTINE HEALTH MAINTENANCE
     Dosage: 1200 MG
     Route: 048
  11. POTASSIUM [Concomitant]
     Indication: ROUTINE HEALTH MAINTENANCE
     Dosage: 1500 MG
     Route: 048
  12. COREG [Concomitant]
     Indication: HYPERTENSION
     Dosage: 50 MG
     Route: 048
  13. SIMVASTATIN [Concomitant]
     Indication: BLOOD CHOLESTEROL INCREASED
     Dosage: 40 MG
     Route: 048
  14. TRAZODONE HCL [Concomitant]
     Indication: INSOMNIA
     Dosage: 25 MG
     Route: 048
  15. GLUCOSAMINE [Concomitant]
     Indication: ROUTINE HEALTH MAINTENANCE
     Dosage: 300 MG
     Route: 048

REACTIONS (1)
  - JOINT INJURY [None]
